FAERS Safety Report 7630092-8 (Version None)
Quarter: 2011Q3

REPORT INFORMATION
  Report Type: 
  Country: None (occurrence: None)
  Receive Date: 20110722
  Receipt Date: 20110718
  Transmission Date: 20111222
  Serious: Yes (Life-Threatening, Hospitalization)
  Sender: FDA-Public Use
  Company Number: CA-JNJFOC-20110707285

PATIENT
  Sex: Male
  Weight: 97.6 kg

DRUGS (11)
  1. GOLIMUMAB [Suspect]
     Route: 058
     Dates: start: 20110601
  2. GOLIMUMAB [Suspect]
     Indication: ANKYLOSING SPONDYLITIS
     Route: 058
     Dates: start: 20060828
  3. GOLIMUMAB [Suspect]
     Route: 058
     Dates: start: 20100526
  4. FLONASE [Concomitant]
     Route: 045
     Dates: start: 20080702
  5. SLOW-K [Concomitant]
     Route: 048
     Dates: start: 20070815
  6. ZANTAC [Concomitant]
     Route: 048
     Dates: start: 20091020
  7. FOSAMAX [Concomitant]
     Route: 048
     Dates: start: 20070815
  8. HYDROCHLOROTHIAZIDE [Concomitant]
     Route: 048
     Dates: start: 20070705
  9. ADVIL COLD AND SINUS [Concomitant]
     Route: 048
     Dates: start: 20061213
  10. IBUPROFEN [Concomitant]
     Route: 048
     Dates: start: 20070901
  11. ATACAND [Concomitant]
     Route: 048
     Dates: start: 20090302

REACTIONS (1)
  - AORTIC DISSECTION [None]
